FAERS Safety Report 9243615 (Version 1)
Quarter: 2013Q1

REPORT INFORMATION
  Report Type: Spontaneous
  Country: US (occurrence: None)
  Receive Date: 20121123
  Receipt Date: 20121123
  Transmission Date: 20140127
  Serious: No
  Sender: FDA-Public Use
  Company Number: 360053

PATIENT
  Sex: Female

DRUGS (3)
  1. VICTOZA (LIRAGLUTIDE) SOLUTION FOR INJECTION, 6MG/ML [Suspect]
     Indication: TYPE 2 DIABETES MELLITUS
     Route: 058
     Dates: start: 2010
  2. LEVEMIR FLEXPEN(INSULIN DETEMIR) SOLUTION FOR INJECTION,.0024 MOL/L [Concomitant]
  3. HUMALOG (INSULIN LISPRO) [Concomitant]

REACTIONS (1)
  - Decreased appetite [None]
